FAERS Safety Report 9143836 (Version 2)
Quarter: 2013Q1

REPORT INFORMATION
  Report Type: Report from Study
  Country: CO (occurrence: CO)
  Receive Date: 20130306
  Receipt Date: 20130318
  Transmission Date: 20140127
  Serious: Yes (Death, Hospitalization)
  Sender: FDA-Public Use
  Company Number: CO-ROCHE-1196936

PATIENT
  Age: 55 Year
  Sex: Male

DRUGS (1)
  1. CELLCEPT [Suspect]
     Indication: RENAL TRANSPLANT
     Route: 048
     Dates: start: 20111123

REACTIONS (3)
  - Kidney transplant rejection [Recovering/Resolving]
  - Cerebrovascular accident [Recovering/Resolving]
  - Brain death [Fatal]
